FAERS Safety Report 8255605-7 (Version None)
Quarter: 2012Q2

REPORT INFORMATION
  Report Type: 
  Country: None (occurrence: None)
  Receive Date: 20120403
  Receipt Date: 20120312
  Transmission Date: 20120825
  Serious: Yes (Death, Hospitalization)
  Sender: FDA-Public Use
  Company Number: PHHO2010AR05966

PATIENT
  Sex: Male
  Weight: 74 kg

DRUGS (3)
  1. PREDNISONE TAB [Concomitant]
     Indication: IMMUNOSUPPRESSION
  2. EVEROLIMUS [Suspect]
     Indication: LIVER TRANSPLANT
     Dosage: UNK
     Route: 048
     Dates: start: 20100125, end: 20100416
  3. TACROLIMUS [Suspect]
     Indication: LIVER TRANSPLANT
     Dosage: UNK
     Route: 048
     Dates: start: 20100125, end: 20100416

REACTIONS (8)
  - SEPSIS [None]
  - CANDIDIASIS [None]
  - SINUSITIS [None]
  - GASTROINTESTINAL INFECTION [None]
  - HEPATIC ARTERY STENOSIS [None]
  - HEPATIC ARTERY THROMBOSIS [None]
  - BLOOD ALKALINE PHOSPHATASE INCREASED [None]
  - PYREXIA [None]
